FAERS Safety Report 11649044 (Version 1)
Quarter: 2015Q4

REPORT INFORMATION
  Report Type: Spontaneous
  Country: FR (occurrence: FR)
  Receive Date: 20151021
  Receipt Date: 20151021
  Transmission Date: 20160304
  Serious: Yes (Hospitalization, Other)
  Sender: FDA-Public Use
  Company Number: FR-PFIZER INC-2015346719

PATIENT
  Age: 88 Year
  Sex: Female

DRUGS (8)
  1. COUMADINE [Concomitant]
     Active Substance: WARFARIN SODIUM
     Dosage: 1 MG, 1X/DAY
     Route: 048
  2. EFFEXOR LP [Suspect]
     Active Substance: VENLAFAXINE HYDROCHLORIDE
     Indication: AFFECTIVE DISORDER
     Dosage: UNK
     Route: 048
     Dates: end: 20150721
  3. BISOPROLOL HEMIFUMARATE [Concomitant]
     Active Substance: BISOPROLOL FUMARATE
     Dosage: 5 MG, 1X/DAY
     Route: 048
  4. PANTOPRAZOLE [Concomitant]
     Active Substance: PANTOPRAZOLE SODIUM
     Dosage: 20 MG, 1X/DAY
     Route: 048
  5. AMIODARONE [Concomitant]
     Active Substance: AMIODARONE
     Dosage: 200 MG, UNK
  6. LORAZEPAM. [Concomitant]
     Active Substance: LORAZEPAM
     Dosage: 1 MG, 1X/DAY
     Route: 048
  7. PERINDOPRIL [Concomitant]
     Active Substance: PERINDOPRIL
     Dosage: 4 MG, 1X/DAY
     Route: 048
     Dates: end: 201507
  8. NITRIDERM TTS [Concomitant]
     Active Substance: NITROGLYCERIN
     Dosage: 1 DF, DAILY
     Route: 062

REACTIONS (2)
  - Ischaemic stroke [Unknown]
  - Inappropriate antidiuretic hormone secretion [Recovered/Resolved]

NARRATIVE: CASE EVENT DATE: 2015
